FAERS Safety Report 7455856-5 (Version None)
Quarter: 2011Q2

REPORT INFORMATION
  Report Type: 
  Country: None (occurrence: None)
  Receive Date: 20110503
  Receipt Date: 20110427
  Transmission Date: 20111010
  Serious: Yes (Hospitalization)
  Sender: FDA-Public Use
  Company Number: A0896842A

PATIENT
  Age: 61 Year
  Sex: Male
  Weight: 80.5 kg

DRUGS (1)
  1. AVANDIA [Suspect]
     Dates: start: 20050125, end: 20060802

REACTIONS (3)
  - CARDIAC FAILURE CONGESTIVE [None]
  - ISCHAEMIC CARDIOMYOPATHY [None]
  - RENAL FAILURE CHRONIC [None]
